FAERS Safety Report 14658835 (Version 1)
Quarter: 2018Q1

REPORT INFORMATION
  Report Type: Spontaneous
  Country: US (occurrence: US)
  Receive Date: 20180320
  Receipt Date: 20180320
  Transmission Date: 20180509
  Serious: No
  Sender: FDA-Public Use
  Company Number: US-ASTRAZENECA-2018SE31410

PATIENT
  Age: 15 Month
  Sex: Female
  Weight: 10.2 kg

DRUGS (1)
  1. SYNAGIS [Suspect]
     Active Substance: PALIVIZUMAB
     Indication: OBSTRUCTIVE AIRWAYS DISORDER
     Dosage: ON 03-JAN-2018, 02-FEB-18, 02-MAR-2018,
     Route: 030

REACTIONS (3)
  - Product use in unapproved indication [Unknown]
  - Respiratory syncytial virus infection [Unknown]
  - Off label use [Unknown]
